FAERS Safety Report 5632728-X (Version None)
Quarter: 2008Q1

REPORT INFORMATION
  Report Type: 
  Country: None (occurrence: None)
  Receive Date: 20080221
  Receipt Date: 20080211
  Transmission Date: 20080703
  Serious: Yes (Hospitalization, Other)
  Sender: FDA-Public Use
  Company Number: DE-JNJFOC-20070706060

PATIENT
  Sex: Male
  Weight: 74 kg

DRUGS (10)
  1. INVEGA [Suspect]
     Indication: DELUSIONAL DISORDER, PERSECUTORY TYPE
     Route: 048
  2. RISPERDAL [Suspect]
     Indication: DELUSIONAL DISORDER, PERSECUTORY TYPE
     Route: 048
  3. TRUXAL [Interacting]
  4. TRUXAL [Interacting]
  5. TRUXAL [Interacting]
     Indication: DRUG USE FOR UNKNOWN INDICATION
  6. MAGNESIUM VERLA [Concomitant]
     Indication: DRUG WITHDRAWAL SYNDROME
     Route: 048
  7. AKINETON [Concomitant]
     Route: 048
  8. AKINETON [Concomitant]
     Indication: EXTRAPYRAMIDAL DISORDER
     Route: 048
  9. AKINETON [Concomitant]
     Route: 042
  10. PANTOZOL [Concomitant]

REACTIONS (4)
  - DRUG INTERACTION [None]
  - MUSCULOSKELETAL STIFFNESS [None]
  - OROPHARYNGEAL SPASM [None]
  - TONGUE SPASM [None]
